FAERS Safety Report 21848173 (Version 2)
Quarter: 2023Q1

REPORT INFORMATION
  Report Type: Report from Study
  Country: US (occurrence: US)
  Receive Date: 20230111
  Receipt Date: 20230124
  Transmission Date: 20230417
  Serious: Yes (Hospitalization)
  Sender: FDA-Public Use
  Company Number: US-TASMAN PHARMA, INC.-2023TSM00023

PATIENT
  Age: 59 Year
  Sex: Male
  Weight: 79 kg

DRUGS (9)
  1. CLOZAPINE [Suspect]
     Active Substance: CLOZAPINE
     Indication: Schizophrenia
     Dosage: 500 MG, 1X/DAY
     Route: 048
     Dates: end: 202212
  2. CLOZAPINE [Suspect]
     Active Substance: CLOZAPINE
     Dosage: 150 MG DAILY AND 200 MG AT HS (BEDTIME)
     Route: 048
     Dates: start: 202212, end: 20221231
  3. CLOZAPINE [Suspect]
     Active Substance: CLOZAPINE
     Dosage: 500 MG, 1X/DAY
     Route: 048
     Dates: start: 20230101
  4. UNSPECIFIED INGREDIENT [Suspect]
     Active Substance: UNSPECIFIED INGREDIENT
     Dosage: UNK
  5. CLOPIDOGREL [Concomitant]
     Active Substance: CLOPIDOGREL BISULFATE
     Dosage: 75 MG, 1X/DAY
  6. LAMOTRIGINE [Concomitant]
     Active Substance: LAMOTRIGINE
     Dosage: 150 MG QAM (EVERY MORNING), 100 MG QHS (EVERY NIGHT AT BEDTIME)
  7. PANTOPRAZOLE [Concomitant]
     Active Substance: PANTOPRAZOLE
     Dosage: 40 MG, 1X/DAY
  8. RISPERIDONE [Concomitant]
     Active Substance: RISPERIDONE
     Dosage: 1 MG TWICE DAILY AND 2 MG EACH AFTERNOON
  9. ROSUVASTATIN [Concomitant]
     Active Substance: ROSUVASTATIN
     Dosage: 40 MG, 1X/DAY

REACTIONS (6)
  - Catatonia [Recovering/Resolving]
  - Impaired self-care [Unknown]
  - Schizophrenia [Unknown]
  - Paranoia [Unknown]
  - Treatment noncompliance [Unknown]
  - Confusional state [Unknown]

NARRATIVE: CASE EVENT DATE: 20221201
